FAERS Safety Report 6449997-9 (Version None)
Quarter: 2009Q4

REPORT INFORMATION
  Report Type: 
  Country: None (occurrence: None)
  Receive Date: 20091123
  Receipt Date: 20091118
  Transmission Date: 20100525
  Serious: Yes (Death)
  Sender: FDA-Public Use
  Company Number: US-JNJFOC-20090506801

PATIENT
  Sex: Female
  Weight: 46.27 kg

DRUGS (11)
  1. DURAGESIC-100 [Suspect]
     Indication: PAIN
     Dosage: TWO FENTANYL PATCHES WERE FOUND ON THE PATIENT'S BODY
     Route: 062
  2. ACETAMINOPHEN [Concomitant]
  3. ATROPINE [Concomitant]
  4. TRAZODONE HCL [Concomitant]
  5. MEPROBAMATE [Concomitant]
  6. OXAZEPAM [Concomitant]
  7. TEMAZEPAM [Concomitant]
  8. HYDROCODONE [Concomitant]
  9. CITALOPRAM [Concomitant]
  10. NEURONTIN [Concomitant]
     Route: 065
  11. CYMBALTA [Concomitant]
     Route: 065

REACTIONS (4)
  - DRUG ADMINISTRATION ERROR [None]
  - DRUG INEFFECTIVE [None]
  - DRUG TOXICITY [None]
  - PRODUCT ADHESION ISSUE [None]
